FAERS Safety Report 10214668 (Version 1)
Quarter: 2014Q2

REPORT INFORMATION
  Report Type: Spontaneous
  Country: US (occurrence: US)
  Receive Date: 20140603
  Receipt Date: 20140603
  Transmission Date: 20141212
  Serious: No
  Sender: FDA-Public Use
  Company Number: US-SHIRE-ALL1-2014-00565

PATIENT
  Age: 10 Year
  Sex: Female

DRUGS (1)
  1. VYVANSE [Suspect]
     Indication: ATTENTION DEFICIT/HYPERACTIVITY DISORDER
     Dosage: 20 MG, UNKNOWN
     Route: 048

REACTIONS (4)
  - Movement disorder [Unknown]
  - Bruxism [Unknown]
  - VIIth nerve paralysis [Unknown]
  - Dyskinesia [Unknown]
